FAERS Safety Report 7190366-4 (Version None)
Quarter: 2010Q4

REPORT INFORMATION
  Report Type: 
  Country: None (occurrence: None)
  Receive Date: 20101221
  Receipt Date: 20101221
  Transmission Date: 20110411
  Serious: Yes (Hospitalization)
  Sender: FDA-Public Use
  Company Number: None

PATIENT
  Sex: Male
  Weight: 71.6683 kg

DRUGS (2)
  1. PROPOXYPHENE HCL AND ACETAMINOPHEN [Suspect]
     Indication: HEADACHE
     Dosage: 1 TABLET DAILY EVENING
     Dates: start: 20060101, end: 20100101
  2. PROPOXYPHENE HCL AND ACETAMINOPHEN [Suspect]
     Indication: PAIN
     Dosage: 1 TABLET DAILY EVENING
     Dates: start: 20060101, end: 20100101

REACTIONS (2)
  - CHEST PAIN [None]
  - DIZZINESS [None]
